FAERS Safety Report 4584097-4 (Version None)
Quarter: 2005Q1

REPORT INFORMATION
  Report Type: 
  Country: None (occurrence: None)
  Receive Date: 20050216
  Receipt Date: 20041014
  Transmission Date: 20050727
  Serious: Yes (Other)
  Sender: FDA-Public Use
  Company Number: US-ROCHE-383536

PATIENT
  Age: 50 Year
  Sex: Female
  Weight: 50.7 kg

DRUGS (2)
  1. PEGASYS [Suspect]
     Indication: HEPATITIS C
     Route: 058
     Dates: start: 20030807, end: 20040710
  2. RIBAVIRIN [Suspect]
     Indication: HEPATITIS C
     Dosage: STRENGH PROVIDED AS: 800.
     Route: 048
     Dates: start: 20030807, end: 20040710

REACTIONS (2)
  - DENTAL CARIES [None]
  - TOOTH EXTRACTION [None]
